FAERS Safety Report 4505310-5 (Version None)
Quarter: 2004Q4

REPORT INFORMATION
  Report Type: 
  Country: None (occurrence: None)
  Receive Date: 20041015
  Receipt Date: 20040513
  Transmission Date: 20050328
  Serious: Yes (Other)
  Sender: FDA-Public Use
  Company Number: 2004032380

PATIENT
  Age: 44 Year
  Sex: Female
  Weight: 56.6996 kg

DRUGS (3)
  1. NEURONTIN [Suspect]
     Indication: HYPOMANIA
     Dates: start: 20000101, end: 20001201
  2. TOPIRAMATE [Concomitant]
  3. LEVOTHYROXINE SODIUM [Concomitant]

REACTIONS (5)
  - AGGRESSION [None]
  - ASTHENIA [None]
  - DRUG INEFFECTIVE [None]
  - HYPOMANIA [None]
  - UNEVALUABLE EVENT [None]
